FAERS Safety Report 4290467-4 (Version None)
Quarter: 2004Q1

REPORT INFORMATION
  Report Type: 
  Country: None (occurrence: None)
  Receive Date: 20040209
  Receipt Date: 20040202
  Transmission Date: 20041129
  Serious: Yes (Life-Threatening, Hospitalization)
  Sender: FDA-Public Use
  Company Number: 200410075BNE

PATIENT
  Age: 97 Year
  Sex: Female

DRUGS (3)
  1. ASPIRIN [Suspect]
     Indication: TRANSIENT ISCHAEMIC ATTACK
     Dosage: 75 MG, TOTAL DAILY, ORAL
     Route: 048
     Dates: start: 20000101, end: 20040113
  2. CO-DYDRAMOL [Concomitant]
  3. BENDROFLUAZIDE [Concomitant]

REACTIONS (2)
  - OESOPHAGEAL ULCER HAEMORRHAGE [None]
  - RESPIRATORY ARREST [None]
